FAERS Safety Report 9341479 (Version 1)
Quarter: 2013Q2

REPORT INFORMATION
  Report Type: Spontaneous
  Country: US (occurrence: US)
  Receive Date: 20130611
  Receipt Date: 20130611
  Transmission Date: 20140414
  Serious: No
  Sender: FDA-Public Use
  Company Number: US-009507513-1306USA004079

PATIENT
  Age: 72 Year
  Sex: Female

DRUGS (2)
  1. DULERA [Suspect]
     Indication: CHRONIC OBSTRUCTIVE PULMONARY DISEASE
     Dosage: 2PUFFS / TWICE DAILY
     Dates: start: 201303
  2. COMBIVENT [Concomitant]
     Dosage: UNK

REACTIONS (1)
  - Candida infection [Not Recovered/Not Resolved]
